FAERS Safety Report 18745410 (Version 2)
Quarter: 2021Q1

REPORT INFORMATION
  Report Type: Spontaneous
  Country: US (occurrence: US)
  Receive Date: 20210115
  Receipt Date: 20210122
  Transmission Date: 20210419
  Serious: Yes (Other)
  Sender: FDA-Public Use
  Company Number: US-SA-2021SA007817

PATIENT
  Age: 69 Year

DRUGS (1)
  1. SEVELAMER SALT NOT SPECIFIED [Suspect]
     Active Substance: SEVELAMER
     Dosage: UNK

REACTIONS (5)
  - Anaemia [Unknown]
  - Crystal deposit intestine [Unknown]
  - Abnormal faeces [Unknown]
  - Large intestinal ulcer [Unknown]
  - Gastrointestinal haemorrhage [Unknown]
